FAERS Safety Report 5233238-4 (Version None)
Quarter: 2007Q1

REPORT INFORMATION
  Report Type: 
  Country: None (occurrence: None)
  Receive Date: 20070206
  Receipt Date: 20070129
  Transmission Date: 20070707
  Serious: Yes (Death, Hospitalization)
  Sender: FDA-Public Use
  Company Number: 430024M06USA

PATIENT
  Age: 53 Year
  Sex: Female
  Weight: 83.7 kg

DRUGS (16)
  1. NOVANTRONE [Suspect]
     Indication: ACUTE MYELOID LEUKAEMIA
  2. ETOPOSIDE [Suspect]
  3. CYTARABINE [Suspect]
  4. CEP-701 (INVESTIGATIONAL DRUG) [Suspect]
     Dosage: 80 MG, 2 IN 1 DAYS, ORAL
     Route: 048
     Dates: start: 20060327, end: 20060501
  5. PROAMATINE [Concomitant]
  6. FLORINEF [Concomitant]
  7. WELLBUTRIN [Concomitant]
  8. ZOFRAN [Concomitant]
  9. SINGULAIR (MONTELUKAST /01362601/) [Concomitant]
  10. ATROVENT [Concomitant]
  11. LEXAPRO [Concomitant]
  12. LEVOXYL [Concomitant]
  13. NEXIUM [Concomitant]
  14. LEVAQUIN [Concomitant]
  15. COMPAZINE [Concomitant]
  16. ADVAIR (SERETIDE) [Concomitant]

REACTIONS (3)
  - CARDIAC FAILURE CONGESTIVE [None]
  - DISEASE PROGRESSION [None]
  - TRANSAMINASES INCREASED [None]
